FAERS Safety Report 22635682 (Version 1)
Quarter: 2023Q2

REPORT INFORMATION
  Report Type: Spontaneous
  Country: CN (occurrence: CN)
  Receive Date: 20230623
  Receipt Date: 20230623
  Transmission Date: 20230722
  Serious: Yes (Other)
  Sender: FDA-Public Use
  Company Number: CN-009507513-2306CHN010495

PATIENT
  Sex: Male

DRUGS (5)
  1. CILASTATIN SODIUM\IMIPENEM [Suspect]
     Active Substance: CILASTATIN SODIUM\IMIPENEM
     Indication: Anti-infective therapy
     Dosage: 1 GRAM, QID
     Route: 041
     Dates: start: 20230606, end: 20230613
  2. CILASTATIN SODIUM\IMIPENEM [Suspect]
     Active Substance: CILASTATIN SODIUM\IMIPENEM
     Indication: Pneumonia
  3. NALBUPHINE HYDROCHLORIDE [Suspect]
     Active Substance: NALBUPHINE HYDROCHLORIDE
     Indication: Analgesic therapy
     Dosage: 20 MG, QD (2ML/H) (ALSO REPORTED AS TID, CONFLICTING INFORMATION)
     Dates: start: 20230612, end: 20230613
  4. VANCOMYCIN [Concomitant]
     Active Substance: VANCOMYCIN
     Indication: Pneumonia
     Dosage: UNK
     Dates: start: 20230606
  5. SULFAMETHOXAZOLE [Concomitant]
     Active Substance: SULFAMETHOXAZOLE
     Indication: Pneumonia
     Dosage: UNK
     Dates: start: 20230606

REACTIONS (4)
  - Endotracheal intubation [Unknown]
  - Mechanical ventilation [Unknown]
  - Delirium [Recovering/Resolving]
  - Analgesic therapy [Recovered/Resolved]

NARRATIVE: CASE EVENT DATE: 20230610
